FAERS Safety Report 5702757-6 (Version None)
Quarter: 2008Q2

REPORT INFORMATION
  Report Type: 
  Country: None (occurrence: None)
  Receive Date: 20080411
  Receipt Date: 20080331
  Transmission Date: 20081010
  Serious: Yes (Hospitalization)
  Sender: FDA-Public Use
  Company Number: B0515213A

PATIENT
  Age: 86 Year
  Sex: Female

DRUGS (12)
  1. FORTUM [Suspect]
     Indication: URINARY TRACT INFECTION
     Dosage: 3G PER DAY
     Route: 042
     Dates: start: 20080228
  2. GENTAMICIN [Suspect]
     Indication: URINARY TRACT INFECTION
     Dosage: 200MG PER DAY
     Route: 042
     Dates: start: 20080228, end: 20080307
  3. LASIX [Concomitant]
     Indication: DRUG USE FOR UNKNOWN INDICATION
     Dosage: 20MG PER DAY
     Route: 048
  4. CORVASAL [Concomitant]
     Indication: DRUG USE FOR UNKNOWN INDICATION
     Dosage: 2MG THREE TIMES PER DAY
     Route: 048
  5. AMLOR [Concomitant]
     Indication: DRUG USE FOR UNKNOWN INDICATION
     Dosage: 10MG PER DAY
     Route: 048
  6. ALLOPURINOL [Concomitant]
     Indication: DRUG USE FOR UNKNOWN INDICATION
     Dosage: 100MG PER DAY
     Route: 065
  7. XALATAN [Concomitant]
     Indication: DRUG USE FOR UNKNOWN INDICATION
     Dosage: 1DROP PER DAY
     Route: 047
  8. COVERSYL [Concomitant]
     Indication: DRUG USE FOR UNKNOWN INDICATION
     Dosage: 2MG PER DAY
     Route: 048
  9. HEMIGOXINE [Concomitant]
     Indication: DRUG USE FOR UNKNOWN INDICATION
     Dosage: .125MG PER DAY
     Route: 048
  10. SINTROM [Concomitant]
     Route: 065
  11. CELESTONE [Concomitant]
     Indication: BRONCHOPNEUMOPATHY
     Dosage: .5MG PER DAY
     Route: 048
  12. IMOVANE [Concomitant]
     Indication: DRUG USE FOR UNKNOWN INDICATION
     Dosage: 1TAB PER DAY
     Route: 048

REACTIONS (29)
  - ABDOMINAL PAIN [None]
  - ABDOMINAL RIGIDITY [None]
  - ABDOMINAL SYMPTOM [None]
  - ANURIA [None]
  - ATRIAL FIBRILLATION [None]
  - BLOOD CREATININE INCREASED [None]
  - CARDIOMEGALY [None]
  - CHOLELITHIASIS [None]
  - CLUMSINESS [None]
  - DEPRESSED LEVEL OF CONSCIOUSNESS [None]
  - DISTURBANCE IN ATTENTION [None]
  - ECCHYMOSIS [None]
  - ELECTROCARDIOGRAM T WAVE INVERSION [None]
  - FALL [None]
  - FLUID RETENTION [None]
  - HAEMATOMA [None]
  - HYPERKALAEMIA [None]
  - LEUKOCYTOSIS [None]
  - LIVER DISORDER [None]
  - LUNG DISORDER [None]
  - METABOLIC ACIDOSIS [None]
  - OEDEMA PERIPHERAL [None]
  - PLEURAL EFFUSION [None]
  - RALES [None]
  - RENAL CYST [None]
  - RENAL FAILURE ACUTE [None]
  - SOMNOLENCE [None]
  - TACHYPNOEA [None]
  - WOUND [None]
